FAERS Safety Report 7409490-3 (Version None)
Quarter: 2011Q2

REPORT INFORMATION
  Report Type: 
  Country: None (occurrence: None)
  Receive Date: 20110407
  Receipt Date: 20110407
  Transmission Date: 20111010
  Serious: Yes (Hospitalization)
  Sender: FDA-Public Use
  Company Number: None

PATIENT
  Age: 88 Year
  Sex: Male
  Weight: 67 kg

DRUGS (1)
  1. PROPRANOLOL [Suspect]
     Indication: HYPERTENSION
     Dosage: 60 MG EVERY DAY PO
     Route: 048
     Dates: start: 20090410

REACTIONS (2)
  - SYNCOPE [None]
  - BRADYCARDIA [None]
